FAERS Safety Report 7319481-9 (Version None)
Quarter: 2011Q1

REPORT INFORMATION
  Report Type: 
  Country: None (occurrence: None)
  Receive Date: 20110228
  Receipt Date: 20100413
  Transmission Date: 20110831
  Serious: No
  Sender: FDA-Public Use
  Company Number: A0854798A

PATIENT
  Age: 27 Year
  Sex: Male

DRUGS (3)
  1. LAMICTAL [Suspect]
     Dosage: 150MG TWICE PER DAY
     Route: 048
     Dates: start: 20080101
  2. NO CONCURRENT MEDICATION [Concomitant]
  3. SEROQUEL [Suspect]
     Dosage: 25MG TWICE PER DAY
     Route: 048
     Dates: start: 20080101

REACTIONS (3)
  - MEMORY IMPAIRMENT [None]
  - INSOMNIA [None]
  - DRUG INTERACTION [None]
